FAERS Safety Report 16234305 (Version 2)
Quarter: 2019Q2

REPORT INFORMATION
  Report Type: Spontaneous
  Country: IT (occurrence: IT)
  Receive Date: 20190424
  Receipt Date: 20190509
  Transmission Date: 20190711
  Serious: Yes (Hospitalization)
  Sender: FDA-Public Use
  Company Number: PHHY2019IT089109

PATIENT
  Age: 56 Year
  Sex: Female

DRUGS (2)
  1. TICLOPIDINE [Concomitant]
     Active Substance: TICLOPIDINE
     Indication: THROMBOPHLEBITIS SUPERFICIAL
     Dosage: 500 MG, QD
     Route: 065
  2. ANASTROZOLE. [Suspect]
     Active Substance: ANASTROZOLE
     Indication: BREAST CANCER
     Dosage: 1 MG, QD
     Route: 065

REACTIONS (8)
  - Aphasia [Unknown]
  - Monoparesis [Unknown]
  - Central nervous system lesion [Recovering/Resolving]
  - Cerebral ischaemia [Recovering/Resolving]
  - Speech disorder [Recovering/Resolving]
  - Disorientation [Recovering/Resolving]
  - Facial paresis [Unknown]
  - Antiphospholipid syndrome [Recovering/Resolving]
